FAERS Safety Report 5301050-3 (Version None)
Quarter: 2007Q2

REPORT INFORMATION
  Report Type: 
  Country: None (occurrence: None)
  Receive Date: 20070418
  Receipt Date: 20070404
  Transmission Date: 20071010
  Serious: Yes (Hospitalization, Other)
  Sender: FDA-Public Use
  Company Number: US-SHR-US-2005-025424

PATIENT
  Age: 51 Year
  Sex: Male
  Weight: 101.8 kg

DRUGS (13)
  1. GM-CSF (9874) [Suspect]
     Indication: CROHN'S DISEASE
     Dosage: 6 A?G/KG, 1X/DAY
     Route: 058
     Dates: start: 20051103, end: 20051130
  2. GM-CSF (9874) [Suspect]
     Dosage: 6 A?G/KG, 1X/DAY
     Route: 058
     Dates: start: 20051205, end: 20051226
  3. LOMOTIL [Concomitant]
     Route: 048
     Dates: start: 19920101
  4. ROLAIDS [Concomitant]
     Route: 048
     Dates: start: 19690101
  5. TUMS [Concomitant]
     Route: 048
     Dates: start: 19740101
  6. MAALOX                                  /USA/ [Concomitant]
     Route: 048
     Dates: start: 19740101
  7. EXCEDRIN (MIGRAINE) [Concomitant]
     Route: 048
     Dates: start: 19640101
  8. NEOSPORIN [Concomitant]
     Dosage: TOPICALLY TO ANKLES AND SHINS
     Route: 061
     Dates: start: 19660101
  9. TYLENOL [Concomitant]
     Indication: PAIN
     Dosage: 1000 MG, AS REQ'D
     Route: 048
     Dates: start: 19750101
  10. AMBIEN [Concomitant]
     Indication: INSOMNIA
     Route: 048
     Dates: start: 20051101
  11. BACTROBAN [Concomitant]
     Route: 061
     Dates: start: 20051201
  12. GLUCOSAMINE [Concomitant]
  13. M.V.I. [Concomitant]
     Dosage: 1 TAB(S), 1X/DAY
     Route: 048

REACTIONS (1)
  - PERICARDITIS [None]
